FAERS Safety Report 4808395-1 (Version None)
Quarter: 2005Q4

REPORT INFORMATION
  Report Type: 
  Country: None (occurrence: None)
  Receive Date: 20051021
  Receipt Date: 20030612
  Transmission Date: 20060501
  Serious: No
  Sender: FDA-Public Use
  Company Number: FR_030602548

PATIENT
  Age: 35 Year
  Sex: Male

DRUGS (4)
  1. ZYPREXA [Suspect]
     Indication: PSYCHOTIC DISORDER
     Dosage: 12.5 MG/DAY
     Dates: start: 20030201
  2. XANAX [Concomitant]
  3. IMOVANE (ZOPICLONE) [Concomitant]
  4. THERALENE (ALIMEMAZINE TARTRATE) [Concomitant]

REACTIONS (2)
  - LEUKOPENIA [None]
  - NEUTROPENIA [None]
